FAERS Safety Report 9856612 (Version 2)
Quarter: 2014Q3

REPORT INFORMATION
  Report Type: Spontaneous
  Country: US (occurrence: US)
  Receive Date: 20140130
  Receipt Date: 20140807
  Transmission Date: 20150326
  Serious: Yes (Hospitalization, Other)
  Sender: FDA-Public Use
  Company Number: US-009507513-1401USA010070

PATIENT
  Sex: Female

DRUGS (1)
  1. NUVARING [Suspect]
     Active Substance: ETHINYL ESTRADIOL\ETONOGESTREL
     Indication: CONTRACEPTION
     Dosage: 0.12-0.15MG/24HR; APPLY EVERY 3 WEEKS, THEN REMOVE FOR 1 WEEK
     Route: 067
     Dates: start: 20080408

REACTIONS (7)
  - Cerebrovascular accident [Unknown]
  - Paraesthesia [Unknown]
  - Convulsion [Unknown]
  - Transient ischaemic attack [Unknown]
  - Fall [Unknown]
  - Hypoaesthesia [Unknown]
  - Nausea [Unknown]

NARRATIVE: CASE EVENT DATE: 20080613
